FAERS Safety Report 7703566-9 (Version None)
Quarter: 2011Q3

REPORT INFORMATION
  Report Type: 
  Country: None (occurrence: None)
  Receive Date: 20110823
  Receipt Date: 20110810
  Transmission Date: 20111222
  Serious: Yes (Other)
  Sender: FDA-Public Use
  Company Number: PHEH2011US01452

PATIENT
  Age: 51 Year
  Sex: Female

DRUGS (3)
  1. FEMARA [Suspect]
     Dosage: 2.5 MG, QD
  2. LISINOPRIL [Concomitant]
  3. ZOCOR [Concomitant]

REACTIONS (4)
  - MOVEMENT DISORDER [None]
  - ROTATOR CUFF SYNDROME [None]
  - MENISCUS LESION [None]
  - FEELING ABNORMAL [None]
